FAERS Safety Report 20369964 (Version 3)
Quarter: 2022Q3

REPORT INFORMATION
  Report Type: Spontaneous
  Country: US (occurrence: US)
  Receive Date: 20220124
  Receipt Date: 20220808
  Transmission Date: 20221027
  Serious: No
  Sender: FDA-Public Use
  Company Number: US-PFIZER INC-202101827056

PATIENT
  Age: 26 Year
  Sex: Female
  Weight: 44.91 kg

DRUGS (4)
  1. DEPO-PROVERA [Suspect]
     Active Substance: MEDROXYPROGESTERONE ACETATE
     Indication: Contraception
     Dosage: 150 MG/ML -1ML, INJECTION TO THE BUTTOCKS
     Route: 030
     Dates: start: 20211011
  2. DEPO-PROVERA [Suspect]
     Active Substance: MEDROXYPROGESTERONE ACETATE
     Dosage: 150 MG/ML -1ML, INJECTION TO THE BUTTOCKS
     Route: 030
     Dates: start: 20211104
  3. ATIVAN [Concomitant]
     Active Substance: LORAZEPAM
     Indication: Anxiety
     Dosage: 1 - 0.5MG TABLET TAKEN 3 TIMES DAILY
     Dates: start: 20211104, end: 2021
  4. TEGRETOL [Concomitant]
     Active Substance: CARBAMAZEPINE
     Indication: Anxiety
     Dosage: 200 MG, 2X/DAY
     Dates: start: 20211104, end: 2021

REACTIONS (2)
  - Extra dose administered [Unknown]
  - Platelet count increased [Unknown]

NARRATIVE: CASE EVENT DATE: 20210101
